FAERS Safety Report 4386972-2 (Version None)
Quarter: 2004Q2

REPORT INFORMATION
  Report Type: 
  Country: None (occurrence: None)
  Receive Date: 20040630
  Receipt Date: 20040304
  Transmission Date: 20050107
  Serious: Yes (Hospitalization)
  Sender: FDA-Public Use
  Company Number: 200410745JP

PATIENT
  Age: 68 Year
  Sex: Female
  Weight: 51 kg

DRUGS (4)
  1. KETEK [Suspect]
     Indication: BRONCHITIS
     Route: 048
     Dates: start: 20040213, end: 20040213
  2. PENGLOBE [Suspect]
     Indication: BRONCHITIS
     Route: 048
     Dates: start: 20040207
  3. CEFOBID [Suspect]
     Indication: GASTROENTERITIS
     Route: 041
     Dates: start: 20040213, end: 20040214
  4. SOLITA T [Concomitant]
     Indication: BRONCHITIS
     Route: 041
     Dates: start: 20040213, end: 20040213

REACTIONS (1)
  - MELAENA [None]
